FAERS Safety Report 9825470 (Version 1)
Quarter: 2013Q4

REPORT INFORMATION
  Report Type: Spontaneous
  Country: US (occurrence: None)
  Receive Date: 20131028
  Receipt Date: 20131028
  Transmission Date: 20140711
  Serious: Yes (Other)
  Sender: FDA-Public Use
  Company Number: 2013US002391

PATIENT
  Age: 54 Year
  Sex: Female
  Weight: 65 kg

DRUGS (1)
  1. ICLUSIG [Suspect]
     Indication: CHRONIC MYELOID LEUKAEMIA
     Route: 048
     Dates: start: 20130617

REACTIONS (7)
  - Vaginal haemorrhage [None]
  - Neck pain [None]
  - Throat irritation [None]
  - Asthenopia [None]
  - Dyspnoea [None]
  - Abdominal pain upper [None]
  - Headache [None]
